FAERS Safety Report 15954865 (Version 2)
Quarter: 2019Q1

REPORT INFORMATION
  Report Type: Spontaneous
  Country: DE (occurrence: DE)
  Receive Date: 20190213
  Receipt Date: 20190306
  Transmission Date: 20190417
  Serious: Yes (Other)
  Sender: FDA-Public Use
  Company Number: DE-ASTRAZENECA-2019SE21448

PATIENT
  Age: 79 Year
  Sex: Male

DRUGS (1)
  1. ZOLMITRIPTAN. [Suspect]
     Active Substance: ZOLMITRIPTAN
     Indication: MIGRAINE
     Dosage: UNKNOWN DOSE
     Route: 065

REACTIONS (5)
  - Myosclerosis [Unknown]
  - Hypersensitivity [Unknown]
  - Product use issue [Unknown]
  - Temperature intolerance [Unknown]
  - Depressed mood [Unknown]
